FAERS Safety Report 6931025-X (Version None)
Quarter: 2010Q3

REPORT INFORMATION
  Report Type: 
  Country: None (occurrence: None)
  Receive Date: 20100817
  Receipt Date: 20100817
  Transmission Date: 20110219
  Serious: Yes (Hospitalization)
  Sender: FDA-Public Use
  Company Number: None

PATIENT
  Sex: Male
  Weight: 74.2 kg

DRUGS (4)
  1. FLUOROURACIL [Suspect]
     Dosage: 4076
     Dates: end: 20100628
  2. ERBITUX [Suspect]
     Dosage: 455 MG
     Dates: end: 20100628
  3. CAMPTOSAR [Suspect]
     Dosage: 273 MG
     Dates: end: 20100628
  4. LEUCOVORIN CALCIUM [Suspect]
     Dosage: 728 MG
     Dates: end: 20100628

REACTIONS (2)
  - ABDOMINAL PAIN [None]
  - DIARRHOEA [None]
